FAERS Safety Report 8967168 (Version 1)
Quarter: 2012Q4

REPORT INFORMATION
  Report Type: 
  Country: US (occurrence: US)
  Receive Date: 20121214
  Receipt Date: 20121214
  Transmission Date: 20130627
  Serious: Yes (Hospitalization)
  Sender: FDA-Public Use
  Company Number: GXBR2012US002405

PATIENT
  Sex: Female

DRUGS (1)
  1. ENOXAPARIN SODIUM [Suspect]
     Indication: NEPHROGENIC ANAEMIA
     Dosage: 80 mg, QD
     Route: 058
     Dates: start: 201209, end: 201211

REACTIONS (1)
  - Abdominal pain upper [Unknown]
